FAERS Safety Report 9226828 (Version 1)
Quarter: 2013Q2

REPORT INFORMATION
  Report Type: Spontaneous
  Country: KR (occurrence: KR)
  Receive Date: 20130412
  Receipt Date: 20130412
  Transmission Date: 20140414
  Serious: Yes (Other)
  Sender: FDA-Public Use
  Company Number: KR-009507513-1304KOR003640

PATIENT
  Age: 38 Year
  Sex: Male

DRUGS (7)
  1. PROPECIA [Suspect]
     Indication: ALOPECIA
     Dosage: UNK
     Route: 048
  2. PROPECIA [Suspect]
     Indication: PRURITUS
  3. MINOXYL [Suspect]
     Indication: ALOPECIA
  4. MINOXYL [Suspect]
     Indication: PRURITUS
  5. CALCIUM (UNSPECIFIED) [Concomitant]
     Dosage: UNK
     Dates: start: 201208
  6. ASCORBIC ACID [Concomitant]
  7. VITAMIN D (UNSPECIFIED) [Concomitant]

REACTIONS (4)
  - Salivary gland resection [Unknown]
  - Salivary gland disorder [Unknown]
  - Tongue blistering [Unknown]
  - Hypotension [Recovered/Resolved]
